FAERS Safety Report 25250942 (Version 3)
Quarter: 2025Q3

REPORT INFORMATION
  Report Type: Report from Study
  Country: MX (occurrence: MX)
  Receive Date: 20250429
  Receipt Date: 20250803
  Transmission Date: 20251021
  Serious: Yes (Hospitalization, Other)
  Sender: ALEXION PHARMACEUTICALS
  Company Number: MX-AstraZeneca-CH-00857378A

PATIENT
  Age: 70 Year
  Sex: Female
  Weight: 100 kg

DRUGS (15)
  1. DAPAGLIFLOZIN\METFORMIN HYDROCHLORIDE [Suspect]
     Active Substance: DAPAGLIFLOZIN\METFORMIN HYDROCHLORIDE
     Indication: Type 2 diabetes mellitus
     Dosage: 1 DOSAGE FORM, QD
     Dates: start: 2020, end: 20250401
  2. DAPAGLIFLOZIN\METFORMIN HYDROCHLORIDE [Suspect]
     Active Substance: DAPAGLIFLOZIN\METFORMIN HYDROCHLORIDE
     Dosage: 1 DOSAGE FORM, QD
     Dates: start: 20250505
  3. FUROSEMIDE [Concomitant]
     Active Substance: FUROSEMIDE
     Indication: Peripheral swelling
     Dosage: 20 MILLIGRAM, QD
     Dates: start: 2024
  4. APIXABAN [Concomitant]
     Active Substance: APIXABAN
     Dosage: 5 MILLIGRAM, Q12H
     Dates: start: 202003
  5. ENTRESTO [Concomitant]
     Active Substance: SACUBITRIL\VALSARTAN
     Indication: Peripheral swelling
     Dosage: 25 MILLIGRAM, Q12H
     Dates: start: 2024
  6. Valvulan [Concomitant]
     Indication: Prophylaxis
     Dosage: 0.25 MILLIGRAM, QOD
     Dates: start: 2020
  7. CORDARONE [Concomitant]
     Active Substance: AMIODARONE HYDROCHLORIDE
     Dosage: 0.5 DOSAGE FORM, QD
  8. Senosidos AB [Concomitant]
     Dosage: 1 DOSAGE FORM, QD
     Dates: start: 2020
  9. FINERENONE [Concomitant]
     Active Substance: FINERENONE
     Dosage: 10 MILLIGRAM, QD
     Dates: start: 2024
  10. BECLOMETHASONE DIPROPIONATE\FORMOTEROL FUMARATE\GLYCOPYRROLATE [Concomitant]
     Active Substance: BECLOMETHASONE DIPROPIONATE\FORMOTEROL FUMARATE\GLYCOPYRROLATE
     Indication: Chronic obstructive pulmonary disease
     Dosage: 2 DOSAGE FORM, Q12H
     Dates: start: 2020
  11. BECLOMETHASONE DIPROPIONATE\FORMOTEROL FUMARATE\GLYCOPYRROLATE [Concomitant]
     Active Substance: BECLOMETHASONE DIPROPIONATE\FORMOTEROL FUMARATE\GLYCOPYRROLATE
     Indication: Respiratory arrest
  12. ALBUTEROL [Concomitant]
     Active Substance: ALBUTEROL
     Indication: Chronic obstructive pulmonary disease
     Route: 065
  13. SERETIDE [Concomitant]
     Active Substance: FLUTICASONE PROPIONATE\SALMETEROL XINAFOATE
     Indication: Chronic obstructive pulmonary disease
     Route: 065
  14. BROMAZEPAM [Concomitant]
     Active Substance: BROMAZEPAM
     Indication: Sleep apnoea syndrome
     Dosage: QD
     Route: 065
     Dates: start: 2023, end: 20250424
  15. LEVOTHYROXINE SODIUM [Concomitant]
     Active Substance: LEVOTHYROXINE SODIUM

REACTIONS (26)
  - Cardio-respiratory arrest [Recovered/Resolved with Sequelae]
  - Pneumonia [Recovered/Resolved]
  - Autoimmune thyroiditis [Unknown]
  - Snoring [Not Recovered/Not Resolved]
  - Extra dose administered [Recovered/Resolved]
  - Insomnia [Not Recovered/Not Resolved]
  - Body height decreased [Recovered/Resolved]
  - Blood glucose abnormal [Recovered/Resolved]
  - Blood glucose decreased [Recovered/Resolved]
  - Thyroid disorder [Recovering/Resolving]
  - Malaise [Recovered/Resolved]
  - Hyperhidrosis [Recovered/Resolved]
  - Tinnitus [Recovered/Resolved]
  - Nervousness [Recovered/Resolved]
  - Urinary tract infection [Recovered/Resolved]
  - Arthralgia [Recovered/Resolved]
  - Asthenia [Recovering/Resolving]
  - Peripheral swelling [Recovered/Resolved]
  - Cardiac disorder [Not Recovered/Not Resolved]
  - Chronic obstructive pulmonary disease [Not Recovered/Not Resolved]
  - Weight increased [Recovering/Resolving]
  - Urinary tract infection [Recovered/Resolved]
  - Decreased activity [Recovering/Resolving]
  - Heat stroke [Unknown]
  - Illness [Unknown]
  - Haemoglobin increased [Recovering/Resolving]

NARRATIVE: CASE EVENT DATE: 20200101
